FAERS Safety Report 5525493-8 (Version None)
Quarter: 2007Q4

REPORT INFORMATION
  Report Type: 
  Country: None (occurrence: None)
  Receive Date: 20071120
  Receipt Date: 20071106
  Transmission Date: 20080405
  Serious: Yes (Hospitalization, Disabling)
  Sender: FDA-Public Use
  Company Number: WAES 0711USA02043

PATIENT
  Age: 56 Year
  Sex: Male
  Weight: 68.0396 kg

DRUGS (3)
  1. CAP VORINOSTAT 200 MG [Suspect]
     Indication: NON-SMALL CELL LUNG CANCER
     Dosage: BID/PO
     Route: 048
     Dates: start: 20070710, end: 20071030
  2. TAB ERLOTINIB HYDROCHLORIDE 150 MG [Suspect]
     Indication: NON-SMALL CELL LUNG CANCER
     Dosage: DAILY/PO
     Route: 048
     Dates: start: 20070710, end: 20071030
  3. [THERAPY UNSPECIFIED] [Concomitant]

REACTIONS (5)
  - DISEASE PROGRESSION [None]
  - DISORIENTATION [None]
  - LOSS OF CONSCIOUSNESS [None]
  - MICTURITION DISORDER [None]
  - MUSCULAR WEAKNESS [None]
